FAERS Safety Report 7819167-8 (Version None)
Quarter: 2011Q4

REPORT INFORMATION
  Report Type: 
  Country: None (occurrence: None)
  Receive Date: 20111007
  Receipt Date: 20110926
  Transmission Date: 20120403
  Serious: Yes (Hospitalization)
  Sender: FDA-Public Use
  Company Number: AEGBR201100240

PATIENT
  Age: 33 Year
  Sex: Female

DRUGS (7)
  1. TRANEXAMIC ACID [Suspect]
     Indication: PRODUCT USED FOR UNKNOWN INDICATION
     Dosage: QID, PO
     Route: 048
     Dates: start: 20100922, end: 20100928
  2. ROMIPLOSTIM [Suspect]
     Indication: IDIOPATHIC THROMBOCYTOPENIC PURPURA
     Dosage: 1 UG/KG, SC
     Route: 058
     Dates: start: 20100420, end: 20100920
  3. DEXAMETHASONE [Concomitant]
  4. NORETHINDRONE [Suspect]
     Indication: PRODUCT USED FOR UNKNOWN INDICATION
     Dosage: 5 MG, TID, PO
     Route: 048
     Dates: start: 20100922, end: 20100928
  5. IMMUNE GLOBULIN INTRAVENOUS (HUMAN) [Suspect]
     Indication: IDIOPATHIC THROMBOCYTOPENIC PURPURA
     Dosage: 1000 MG/KG, QD, IV
     Route: 042
     Dates: start: 20100922, end: 20100923
  6. LANSOPRAZOLE [Suspect]
     Indication: GASTROOESOPHAGEAL REFLUX PROPHYLAXIS
     Dosage: 30 MG, QD, PO
     Route: 048
     Dates: start: 20100907, end: 20100928
  7. RITUXIMAB (RITUXIMAB) [Suspect]
     Indication: PRODUCT USED FOR UNKNOWN INDICATION
     Dosage: 375 MG/M2, BIW, IV
     Route: 042
     Dates: start: 20100917, end: 20100924

REACTIONS (2)
  - RASH MACULO-PAPULAR [None]
  - PURPURA [None]
